FAERS Safety Report 7013211-6 (Version None)
Quarter: 2010Q3

REPORT INFORMATION
  Report Type: 
  Country: None (occurrence: None)
  Receive Date: 20100924
  Receipt Date: 20100915
  Transmission Date: 20110219
  Serious: Yes (Other)
  Sender: FDA-Public Use
  Company Number: DO-JNJFOC-20100905596

PATIENT
  Sex: Male

DRUGS (1)
  1. TOPAMAX [Suspect]
     Indication: MIGRAINE PROPHYLAXIS
     Route: 048

REACTIONS (8)
  - ABDOMINAL DISCOMFORT [None]
  - DRUG INEFFECTIVE [None]
  - EPILEPSY [None]
  - INSOMNIA [None]
  - NERVOUS SYSTEM DISORDER [None]
  - PRODUCT COLOUR ISSUE [None]
  - PSYCHOMOTOR HYPERACTIVITY [None]
  - TABLET ISSUE [None]
